FAERS Safety Report 5197219-1 (Version None)
Quarter: 2006Q4

REPORT INFORMATION
  Report Type: 
  Country: None (occurrence: None)
  Receive Date: 20061227
  Receipt Date: 20061206
  Transmission Date: 20070319
  Serious: Yes (Hospitalization)
  Sender: FDA-Public Use
  Company Number: 2006153497

PATIENT
  Age: 15 Month
  Sex: Male

DRUGS (6)
  1. VIRACEPT [Suspect]
     Indication: HIV TEST POSITIVE
     Dosage: 250 MG, ORAL
     Route: 048
  2. COMBIVIR [Suspect]
     Indication: HIV TEST POSITIVE
     Dosage: ORAL
     Route: 048
  3. ZIDOVUDINE [Suspect]
     Indication: HIV TEST POSITIVE
     Dosage: INTRAVENOUS
     Route: 042
  4. ALDOMET [Concomitant]
  5. EUPRESSYL (URAPIDIL) [Concomitant]
  6. TRANDATE [Concomitant]

REACTIONS (2)
  - DRUG EXPOSURE DURING PREGNANCY [None]
  - STRABISMUS CONGENITAL [None]
